FAERS Safety Report 6603761-6 (Version None)
Quarter: 2010Q1

REPORT INFORMATION
  Report Type: 
  Country: None (occurrence: None)
  Receive Date: 20100226
  Receipt Date: 20090121
  Transmission Date: 20100710
  Serious: No
  Sender: FDA-Public Use
  Company Number: A0764523A

PATIENT
  Age: 64 Year
  Sex: Male

DRUGS (3)
  1. LAMICTAL CD [Suspect]
     Indication: BIPOLAR DISORDER
     Dosage: 300MG PER DAY
     Route: 048
     Dates: start: 20080801
  2. SERAX [Concomitant]
  3. TEMAZEPAM [Concomitant]

REACTIONS (3)
  - COUGH [None]
  - RETCHING [None]
  - URTICARIA [None]
